FAERS Safety Report 15823116 (Version 1)
Quarter: 2019Q1

REPORT INFORMATION
  Report Type: Spontaneous
  Country: JP (occurrence: JP)
  Receive Date: 20190114
  Receipt Date: 20190114
  Transmission Date: 20190417
  Serious: Yes (Death)
  Sender: FDA-Public Use
  Company Number: JP-TRAINING-2017TRAIN00053

PATIENT
  Age: 69 Year
  Sex: Male
  Weight: 120 kg

DRUGS (3)
  1. CALPOL [Suspect]
     Active Substance: ACETAMINOPHEN
     Indication: HEADACHE
     Dosage: 10 ML AT 10AM + 2PM
     Route: 048
     Dates: start: 20150228, end: 20150228
  2. CALPOL [Suspect]
     Active Substance: ACETAMINOPHEN
     Indication: TOOTHACHE
     Dosage: 10 ML AT 10AM + 2PM
     Route: 048
     Dates: start: 20150228, end: 20150228
  3. TEST PRODUCT (CIPROFLOXACIN) [Suspect]
     Active Substance: CIPROFLOXACIN

REACTIONS (1)
  - Cardiac arrest [Fatal]

NARRATIVE: CASE EVENT DATE: 20150228
